FAERS Safety Report 4673419-1 (Version None)
Quarter: 2005Q2

REPORT INFORMATION
  Report Type: 
  Country: None (occurrence: None)
  Receive Date: 20050525
  Receipt Date: 20050427
  Transmission Date: 20051028
  Serious: Yes (Other)
  Sender: FDA-Public Use
  Company Number: US-GLAXOSMITHKLINE-A0556193A

PATIENT
  Age: 18 Year
  Sex: Female

DRUGS (3)
  1. LAMICTAL [Suspect]
     Indication: EPILEPSY
     Route: 065
     Dates: start: 19990101
  2. PHENYTOIN [Concomitant]
     Indication: EPILEPSY
  3. OXCARBAZEPINE [Concomitant]
     Indication: EPILEPSY

REACTIONS (1)
  - CEREBELLAR ATROPHY [None]
